FAERS Safety Report 19593181 (Version 2)
Quarter: 2021Q3

REPORT INFORMATION
  Report Type: Spontaneous
  Country: FR (occurrence: FR)
  Receive Date: 20210722
  Receipt Date: 20210804
  Transmission Date: 20211014
  Serious: Yes (Hospitalization, Other)
  Sender: FDA-Public Use
  Company Number: NVSC2021FR158653

PATIENT
  Age: 58 Year
  Sex: Male
  Weight: 79 kg

DRUGS (5)
  1. TACROLIMUS. [Suspect]
     Active Substance: TACROLIMUS
     Indication: RENAL TRANSPLANT
     Dosage: 3 MG, QD
     Route: 048
     Dates: start: 20170710
  2. CORTANCYL [Concomitant]
     Active Substance: PREDNISONE
     Dosage: UNK (7.5 UNITS NOT REPORTED, TOTAL DAILY DOSE)
     Route: 065
     Dates: start: 20210206
  3. TACROLIMUS. [Suspect]
     Active Substance: TACROLIMUS
     Dosage: 2.5 MG, QD
     Route: 048
     Dates: start: 20200902, end: 20210115
  4. CORTANCYL [Concomitant]
     Active Substance: PREDNISONE
     Indication: IMMUNOSUPPRESSANT DRUG THERAPY
     Dosage: UNK (10 UNITS NOT REPORTED, TOTAL DAILY DOSE)
     Route: 065
     Dates: start: 20120711, end: 20210205
  5. MYFORTIC [Concomitant]
     Active Substance: MYCOPHENOLATE SODIUM
     Indication: IMMUNOSUPPRESSANT DRUG THERAPY
     Dosage: UNK (720 UNITS NOT REPORTED, TOTAL DAILY DOSE )
     Route: 065
     Dates: start: 20100208

REACTIONS (1)
  - Septic shock [Recovered/Resolved]

NARRATIVE: CASE EVENT DATE: 20210126
